FAERS Safety Report 16208439 (Version 1)
Quarter: 2019Q2

REPORT INFORMATION
  Report Type: Spontaneous
  Country: JP (occurrence: JP)
  Receive Date: 20190417
  Receipt Date: 20190417
  Transmission Date: 20190711
  Serious: Yes (Hospitalization)
  Sender: FDA-Public Use
  Company Number: JP-ABBVIE-19S-087-2741016-00

PATIENT
  Age: 4 Month
  Sex: Female
  Weight: 4.66 kg

DRUGS (2)
  1. SYNAGIS [Suspect]
     Active Substance: PALIVIZUMAB
     Indication: HEART DISEASE CONGENITAL
  2. SYNAGIS [Suspect]
     Active Substance: PALIVIZUMAB
     Indication: ANTIVIRAL PROPHYLAXIS
     Route: 030
     Dates: start: 20180802

REACTIONS (2)
  - Respiratory syncytial virus infection [Recovered/Resolved]
  - Heart disease congenital [Unknown]

NARRATIVE: CASE EVENT DATE: 20180917
